FAERS Safety Report 5023064-3 (Version None)
Quarter: 2006Q2

REPORT INFORMATION
  Report Type: 
  Country: None (occurrence: None)
  Receive Date: 20060502
  Receipt Date: 20050305
  Transmission Date: 20061013
  Serious: Yes (Disabling, Other)
  Sender: FDA-Public Use
  Company Number: PHEH2005US02849

PATIENT
  Age: 83 Year
  Sex: Female
  Weight: 59.9 kg

DRUGS (3)
  1. LOTREL [Suspect]
     Indication: HYPERTENSION
     Dosage: 2.5MG AMLOD/10 MG BENAZ QD, ORAL
     Route: 048
     Dates: start: 19990101, end: 20050303
  2. PLAVIX [Concomitant]
  3. HERBAL EXTRACTS NOS (NO INGREDINETS/SUBSTANCES) [Concomitant]

REACTIONS (3)
  - ABDOMINAL DISTENSION [None]
  - ABDOMINAL PAIN [None]
  - ANGIONEUROTIC OEDEMA [None]
